FAERS Safety Report 7064254-8 (Version None)
Quarter: 2010Q4

REPORT INFORMATION
  Report Type: 
  Country: None (occurrence: None)
  Receive Date: 20101027
  Receipt Date: 20101018
  Transmission Date: 20110411
  Serious: Yes (Hospitalization)
  Sender: FDA-Public Use
  Company Number: US-SANOFI-AVENTIS-2010SA045255

PATIENT
  Age: 63 Year
  Sex: Male

DRUGS (15)
  1. OXALIPLATIN [Suspect]
     Indication: GASTRIC CANCER
     Route: 041
     Dates: start: 20100302, end: 20100302
  2. OXALIPLATIN [Suspect]
     Route: 041
     Dates: start: 20100622, end: 20100622
  3. BEVACIZUMAB [Suspect]
     Indication: GASTRIC CANCER
     Route: 042
     Dates: start: 20100302, end: 20100302
  4. BEVACIZUMAB [Suspect]
     Route: 042
     Dates: start: 20100622, end: 20100622
  5. CAPECITABINE [Suspect]
     Indication: GASTRIC CANCER
     Route: 048
     Dates: start: 20100302, end: 20100705
  6. ZOFRAN [Concomitant]
     Dates: start: 20100717
  7. PRILOSEC [Concomitant]
     Dates: start: 20100717
  8. CARAFATE [Concomitant]
     Dates: start: 20100717
  9. LOVENOX [Concomitant]
     Dates: start: 20100717
  10. TOPAMAX [Concomitant]
     Dates: start: 20100717
  11. ATIVAN [Concomitant]
     Dates: start: 20100717
  12. ERGOCALCIFEROL [Concomitant]
     Dates: start: 20100717
  13. SUMATRIPTAN SUCCINATE [Concomitant]
     Dates: start: 20100717
  14. FISH OIL [Concomitant]
     Dates: start: 20100717
  15. ACETAMINOPHEN [Concomitant]
     Dates: start: 20100717

REACTIONS (3)
  - ABDOMINAL PAIN UPPER [None]
  - BILE DUCT STENOSIS [None]
  - HYDRONEPHROSIS [None]
